FAERS Safety Report 22103891 (Version 2)
Quarter: 2023Q2

REPORT INFORMATION
  Report Type: Report from Study
  Country: BR (occurrence: BR)
  Receive Date: 20230316
  Receipt Date: 20230405
  Transmission Date: 20230721
  Serious: Yes (Hospitalization)
  Sender: FDA-Public Use
  Company Number: BR-JNJFOC-20220866136

PATIENT
  Age: 64 Year
  Sex: Male
  Weight: 51 kg

DRUGS (2)
  1. REMICADE [Suspect]
     Active Substance: INFLIXIMAB
     Indication: Colitis ulcerative
     Route: 041
     Dates: start: 20220408
  2. MESALAMINE [Concomitant]
     Active Substance: MESALAMINE
     Indication: Colitis ulcerative

REACTIONS (5)
  - Colitis ulcerative [Recovered/Resolved]
  - Anxiety [Unknown]
  - Irritability [Unknown]
  - COVID-19 [Unknown]
  - Drug ineffective [Unknown]
